FAERS Safety Report 10384054 (Version 1)
Quarter: 2014Q1

REPORT INFORMATION
  Report Type: Spontaneous
  Country: US (occurrence: None)
  Receive Date: 20140306
  Receipt Date: 20140306
  Transmission Date: 20141002
  Serious: Yes (Other)
  Sender: FDA-Public Use
  Company Number: 163-21880-13060002

PATIENT
  Age: 65 Year
  Sex: Male
  Weight: 71.67 kg

DRUGS (4)
  1. REVLIMID (LENALIDOMIDE) (15 MILLIGRAM, CAPSULES) [Suspect]
     Indication: PLASMA CELL MYELOMA
     Dosage: 15 MG, 21 IN 28 D, PO
     Route: 048
     Dates: start: 20130225
  2. DECADRON (DEXAMETHASONE) [Concomitant]
  3. ZOMETA (ZOLEDRONIC ACID) [Concomitant]
  4. LASIX (FUROSEMIDE) [Concomitant]

REACTIONS (8)
  - Oedema peripheral [None]
  - Pain in extremity [None]
  - Swelling face [None]
  - Nasopharyngitis [None]
  - Tremor [None]
  - Skin discolouration [None]
  - Hypoaesthesia [None]
  - Limb discomfort [None]
